FAERS Safety Report 17365073 (Version 1)
Quarter: 2020Q1

REPORT INFORMATION
  Report Type: Report from Study
  Country: US (occurrence: US)
  Receive Date: 20200204
  Receipt Date: 20200204
  Transmission Date: 20200409
  Serious: Yes (Death)
  Sender: FDA-Public Use
  Company Number: US-ASTRAZENECA-2020SE15926

PATIENT
  Sex: Female

DRUGS (1)
  1. FASLODEX [Suspect]
     Active Substance: FULVESTRANT
     Dosage: 500 MG, DAY 1-DOSE 1, DAY 15-DOSE 2, DAY 29-DOSE 3 AND AFTER THAT EVERY 28 DAYS
     Route: 030

REACTIONS (1)
  - Death [Fatal]
